FAERS Safety Report 23058287 (Version 1)
Quarter: 2023Q4

REPORT INFORMATION
  Report Type: Spontaneous
  Country: US (occurrence: None)
  Receive Date: 20231011
  Receipt Date: 20231011
  Transmission Date: 20240109
  Serious: Yes (Disabling, Other)
  Sender: FDA-Public Use
  Company Number: None

PATIENT
  Age: 49 Year
  Sex: Female
  Weight: 78.3 kg

DRUGS (1)
  1. LAMISIL [Suspect]
     Active Substance: TERBINAFINE HYDROCHLORIDE
     Indication: Onychomycosis
     Dates: start: 20230816, end: 20231007

REACTIONS (8)
  - Taste disorder [None]
  - Ageusia [None]
  - Dysgeusia [None]
  - Dysgeusia [None]
  - Dysphagia [None]
  - Depression [None]
  - Fear [None]
  - Product use complaint [None]

NARRATIVE: CASE EVENT DATE: 20231007
